FAERS Safety Report 9325379 (Version 1)
Quarter: 2013Q2

REPORT INFORMATION
  Report Type: Spontaneous
  Country: US (occurrence: US)
  Receive Date: 20130604
  Receipt Date: 20130604
  Transmission Date: 20140414
  Serious: No
  Sender: FDA-Public Use
  Company Number: US-B.I. PHARMACEUTICALS,INC./RIDGEFIELD-2013-BI-15488BP

PATIENT
  Age: 55 Year
  Sex: Female
  Weight: 50 kg

DRUGS (7)
  1. SPIRIVA [Suspect]
     Indication: CHRONIC OBSTRUCTIVE PULMONARY DISEASE
     Dosage: 18 MCG
     Route: 055
     Dates: start: 2010
  2. ADVAIR [Concomitant]
     Indication: CHRONIC OBSTRUCTIVE PULMONARY DISEASE
     Dosage: STRENGTH: 500MCG/50MCG; DAILY DOSE: 1000MCG/100MCG
     Route: 055
  3. DIAZEPAM [Concomitant]
     Indication: ANXIETY
     Dosage: 30 MG
     Route: 048
  4. OMEPRAZOLE [Concomitant]
     Indication: GASTROOESOPHAGEAL REFLUX DISEASE
     Dosage: 20 MG
     Route: 048
  5. WELLBUTRIN [Concomitant]
     Indication: DEPRESSION
     Dosage: 300 MG
     Route: 048
  6. NORCO [Concomitant]
     Indication: PAIN
     Dosage: STRENGTH: 10-325MG; DAILY DOSE: 10-325MG
     Route: 048
  7. TRAMADOL [Concomitant]
     Indication: ARTHRITIS
     Route: 048

REACTIONS (1)
  - Incorrect route of drug administration [Recovered/Resolved]
